FAERS Safety Report 13235091 (Version 1)
Quarter: 2017Q1

REPORT INFORMATION
  Report Type: Spontaneous
  Country: AU (occurrence: AU)
  Receive Date: 20170215
  Receipt Date: 20170215
  Transmission Date: 20170428
  Serious: Yes (Other)
  Sender: FDA-Public Use
  Company Number: AU-PFIZER INC-2017063579

PATIENT
  Sex: Female

DRUGS (2)
  1. NAPROGESIC [Concomitant]
     Active Substance: NAPROXEN SODIUM
     Indication: DYSMENORRHOEA
  2. LYRICA [Suspect]
     Active Substance: PREGABALIN
     Indication: NEURALGIA
     Dosage: 25 MG, 2X/DAY

REACTIONS (5)
  - Aggression [Unknown]
  - Mental disorder [Unknown]
  - Depressed mood [Unknown]
  - Gait disturbance [Unknown]
  - Suicidal ideation [Unknown]
